FAERS Safety Report 9355153 (Version 2)
Quarter: 2013Q2

REPORT INFORMATION
  Report Type: Spontaneous
  Country: CN (occurrence: CN)
  Receive Date: 20130619
  Receipt Date: 20130625
  Transmission Date: 20140414
  Serious: Yes (Congenital Anomaly, Other)
  Sender: FDA-Public Use
  Company Number: PHHY2013CN061018

PATIENT
  Sex: 0

DRUGS (2)
  1. SEBIVO [Suspect]
     Indication: CHRONIC HEPATITIS B
     Dosage: 600 MG/DAY
     Route: 064
  2. ENTECAVIR [Concomitant]
     Indication: CHRONIC HEPATITIS B
     Dosage: UNK
     Route: 064

REACTIONS (3)
  - Pyloric stenosis [Recovered/Resolved]
  - Premature baby [Recovered/Resolved]
  - Foetal exposure during pregnancy [Unknown]
